FAERS Safety Report 5205545-2 (Version None)
Quarter: 2007Q1

REPORT INFORMATION
  Report Type: 
  Country: None (occurrence: None)
  Receive Date: 20070109
  Receipt Date: 20070102
  Transmission Date: 20070707
  Serious: Yes (Other)
  Sender: FDA-Public Use
  Company Number: OSCN-PR-0701S-0001

PATIENT
  Age: 13 Year

DRUGS (1)
  1. OMNISCAN [Suspect]
     Dosage: SINGLE DOSE, I.V.
     Dates: start: 20060101, end: 20060101

REACTIONS (1)
  - NEPHROGENIC FIBROSING DERMOPATHY [None]
